FAERS Safety Report 9217950 (Version 2)
Quarter: 2013Q2

REPORT INFORMATION
  Report Type: Report from Study
  Country: DE (occurrence: DE)
  Receive Date: 20130408
  Receipt Date: 20130418
  Transmission Date: 20140414
  Serious: Yes (Death)
  Sender: FDA-Public Use
  Company Number: DE-ACTELION-A-US2013-81772

PATIENT
  Age: 76 Year
  Sex: Male

DRUGS (10)
  1. VENTAVIS [Suspect]
     Indication: PULMONARY ARTERIAL HYPERTENSION
     Dosage: 2.5 ?G, 6X/DAY
     Route: 055
     Dates: start: 20080811
  2. BOSENTAN [Concomitant]
  3. TORASEMID [Concomitant]
  4. REVATIO [Concomitant]
  5. ALLOPURINOL [Concomitant]
  6. FOLSAN [Concomitant]
  7. MARCUMAR [Concomitant]
  8. SIMVASTATIN [Concomitant]
  9. PANTAZOL [Concomitant]
  10. OXYGEN [Concomitant]

REACTIONS (1)
  - Right ventricular failure [Fatal]
